FAERS Safety Report 14679752 (Version 1)
Quarter: 2018Q1

REPORT INFORMATION
  Report Type: Spontaneous
  Country: US (occurrence: US)
  Receive Date: 20180326
  Receipt Date: 20180326
  Transmission Date: 20180509
  Serious: Yes (Hospitalization)
  Sender: FDA-Public Use
  Company Number: US-TAIHO ONCOLOGY INC-EU-2018-00399

PATIENT
  Sex: Male
  Weight: 71.05 kg

DRUGS (1)
  1. LONSURF [Suspect]
     Active Substance: TIPIRACIL HYDROCHLORIDE\TRIFLURIDINE
     Indication: RECTAL CANCER
     Dosage: CYCLE 4
     Route: 048
     Dates: start: 20170221

REACTIONS (6)
  - Hydronephrosis [Unknown]
  - Haematuria [Unknown]
  - Disease progression [Unknown]
  - Pelvic mass [Unknown]
  - Sepsis [Unknown]
  - Renal atrophy [Unknown]
